FAERS Safety Report 8846104 (Version 2)
Quarter: 2012Q4

REPORT INFORMATION
  Report Type: 
  Country: JP (occurrence: JP)
  Receive Date: 20121017
  Receipt Date: 20121225
  Transmission Date: 20130627
  Serious: Yes (Other)
  Sender: FDA-Public Use
  Company Number: JP-009507513-1206USA04723

PATIENT
  Age: 60 Year
  Sex: Female

DRUGS (5)
  1. FOSAPREPITANT DIMEGLUMINE [Suspect]
     Indication: PROPHYLAXIS OF NAUSEA AND VOMITING
     Dosage: 150 mg, ONCE
     Route: 041
     Dates: start: 20120319, end: 20120319
  2. ALOXI [Concomitant]
     Dosage: UNK
     Dates: start: 20120319, end: 20120319
  3. DECADRON PHOSPHATE INJECTION [Concomitant]
     Dosage: UNK
     Dates: start: 20120319, end: 20120319
  4. FARMORUBICIN [Concomitant]
     Indication: BREAST CANCER
     Dosage: UNK
     Dates: start: 20120319, end: 20120319
  5. ENDOXAN [Concomitant]
     Dosage: UNK
     Dates: start: 20120319, end: 20120319

REACTIONS (2)
  - Injection site phlebitis [Recovering/Resolving]
  - Injection site pain [Recovering/Resolving]
